FAERS Safety Report 25832239 (Version 1)
Quarter: 2025Q3

REPORT INFORMATION
  Report Type: Spontaneous
  Country: US (occurrence: None)
  Receive Date: 20250922
  Receipt Date: 20250922
  Transmission Date: 20251020
  Serious: No
  Sender: FDA-CTU
  Company Number: None

PATIENT
  Sex: Female

DRUGS (2)
  1. ZEPBOUND [Suspect]
     Active Substance: TIRZEPATIDE
  2. FASENRA [Concomitant]
     Active Substance: BENRALIZUMAB

REACTIONS (4)
  - Headache [None]
  - Constipation [None]
  - Nausea [None]
  - Therapy cessation [None]
